FAERS Safety Report 6310602-3 (Version None)
Quarter: 2009Q3

REPORT INFORMATION
  Report Type: 
  Country: None (occurrence: None)
  Receive Date: 20090814
  Receipt Date: 20090624
  Transmission Date: 20100115
  Serious: Yes (Hospitalization)
  Sender: FDA-Public Use
  Company Number: US-BRISTOL-MYERS SQUIBB COMPANY-14672257

PATIENT
  Age: 30 Year
  Sex: Female

DRUGS (7)
  1. IXEMPRA KIT [Suspect]
     Indication: BREAST CANCER METASTATIC
     Route: 042
     Dates: start: 20090611, end: 20090611
  2. NEUMEGA [Suspect]
     Dates: start: 20090612
  3. ABRAXANE [Suspect]
  4. NAVELBINE [Suspect]
  5. BENADRYL [Concomitant]
     Indication: PREMEDICATION
  6. ZOFRAN [Concomitant]
     Indication: PREMEDICATION
  7. H2 ANTAGONIST [Concomitant]
     Indication: PREMEDICATION

REACTIONS (4)
  - BONE PAIN [None]
  - FATIGUE [None]
  - PYREXIA [None]
  - VOMITING [None]
